FAERS Safety Report 8230684-1 (Version None)
Quarter: 2012Q1

REPORT INFORMATION
  Report Type: 
  Country: None (occurrence: None)
  Receive Date: 20120323
  Receipt Date: 20120313
  Transmission Date: 20120608
  Serious: Yes (Hospitalization)
  Sender: FDA-Public Use
  Company Number: JP-GENZYME-THYM-1001245

PATIENT
  Sex: Male
  Weight: 63 kg

DRUGS (6)
  1. METHYLPREDNISOLONE SODIUM SUCCINATE [Concomitant]
     Indication: PREMEDICATION
     Dosage: 125 MG, QD
     Route: 042
     Dates: start: 20090928, end: 20091002
  2. FLUCONAZOLE [Concomitant]
     Indication: ANTIFUNGAL PROPHYLAXIS
     Dosage: UNK
     Dates: start: 20090925
  3. LANSOPRAZOLE [Concomitant]
     Indication: PROPHYLAXIS AGAINST GASTROINTESTINAL ULCER
     Dosage: UNK
     Dates: start: 20090925
  4. CYCLOSPORINE [Concomitant]
     Indication: APLASTIC ANAEMIA
     Dosage: 250 MG, QD
     Route: 048
     Dates: start: 20090928
  5. THYMOGLOBULIN [Suspect]
     Indication: APLASTIC ANAEMIA
     Dosage: 225.0 MG, QD
     Route: 042
     Dates: start: 20090928, end: 20090928
  6. THYMOGLOBULIN [Suspect]
     Dosage: 250 MG, QD
     Route: 042
     Dates: start: 20090929, end: 20091002

REACTIONS (5)
  - PYREXIA [None]
  - MYELODYSPLASTIC SYNDROME [None]
  - URTICARIA [None]
  - INJECTION SITE SWELLING [None]
  - ANGIOPATHY [None]
